FAERS Safety Report 5455127-2 (Version None)
Quarter: 2007Q3

REPORT INFORMATION
  Report Type: 
  Country: None (occurrence: None)
  Receive Date: 20070914
  Receipt Date: 20070905
  Transmission Date: 20080115
  Serious: Yes (Hospitalization)
  Sender: FDA-Public Use
  Company Number: PHHO2007IT11911

PATIENT
  Age: 61 Year
  Sex: Female
  Weight: 58.1 kg

DRUGS (7)
  1. PURSENNID (NCH)(SENNA GLYCOSIDES (CA SALTS OF PURIFIED SENNA EXTRACT)) [Suspect]
  2. NATEGLINIDE [Suspect]
     Indication: GLUCOSE TOLERANCE IMPAIRED
     Dosage: BLINDED, INFORMATION WHITHELD.
     Dates: end: 20070709
  3. NATEGLINIDE [Suspect]
     Indication: GLUCOSE TOLERANCE IMPAIRED
     Dosage: BLINDED, INFORMATION WHITHELD.
     Dates: start: 20070709, end: 20070712
  4. NATEGLINIDE [Suspect]
     Indication: GLUCOSE TOLERANCE IMPAIRED
     Dosage: BLINDED, INFORMATION WHITHELD.
     Dates: start: 20020703
  5. VALSARTAN [Suspect]
     Indication: CARDIOVASCULAR DISORDER
     Dosage: LEVEL 1, ORAL,  LEVEL 2 ORAL
     Route: 048
     Dates: end: 20070709
  6. VALSARTAN [Suspect]
     Indication: CARDIOVASCULAR DISORDER
     Dosage: LEVEL 1, ORAL,  LEVEL 2 ORAL
     Route: 048
     Dates: start: 20070709, end: 20070712
  7. VALSARTAN [Suspect]
     Indication: CARDIOVASCULAR DISORDER
     Dosage: LEVEL 1, ORAL,  LEVEL 2 ORAL
     Route: 048
     Dates: start: 20020703

REACTIONS (5)
  - CHILLS [None]
  - HYPERHIDROSIS [None]
  - HYPERTENSION [None]
  - SYNCOPE [None]
  - VOMITING [None]
